FAERS Safety Report 10221082 (Version 1)
Quarter: 2014Q2

REPORT INFORMATION
  Report Type: Spontaneous
  Country: US (occurrence: US)
  Receive Date: 20140606
  Receipt Date: 20140606
  Transmission Date: 20141212
  Serious: No
  Sender: FDA-Public Use
  Company Number: US-009507513-1406USA001854

PATIENT
  Age: 20 Year
  Sex: Female

DRUGS (3)
  1. SINGULAIR [Suspect]
     Indication: UPPER-AIRWAY COUGH SYNDROME
     Dosage: 20 MG, QD
     Route: 048
  2. SINGULAIR [Suspect]
     Indication: NASAL OBSTRUCTION
  3. FLUTICASONE [Suspect]
     Dosage: 2 SPRAY EACH NOSTRIL TWICE DAILY
     Route: 045

REACTIONS (1)
  - Drug ineffective [Unknown]
